FAERS Safety Report 7037338-8 (Version None)
Quarter: 2010Q4

REPORT INFORMATION
  Report Type: 
  Country: None (occurrence: None)
  Receive Date: 20101011
  Receipt Date: 20101005
  Transmission Date: 20110411
  Serious: Yes (Disabling, Other)
  Sender: FDA-Public Use
  Company Number: US-BAYER-201035922NA

PATIENT
  Age: 79 Year
  Sex: Female

DRUGS (4)
  1. GENERIC CIPRO [Suspect]
     Indication: URINARY TRACT INFECTION
     Dosage: TOTAL DAILY DOSE: 500 MG  UNIT DOSE: 250 MG
     Route: 048
  2. METOPROLOL TARTRATE [Concomitant]
  3. SIMVASTATIN [Concomitant]
  4. AMLODIPINE [Concomitant]
     Dosage: AS USED: 10/20 MG

REACTIONS (4)
  - ABASIA [None]
  - EXOSTOSIS [None]
  - LIMB DISCOMFORT [None]
  - PAIN IN EXTREMITY [None]
